FAERS Safety Report 24986854 (Version 1)
Quarter: 2025Q1

REPORT INFORMATION
  Report Type: Spontaneous
  Country: US (occurrence: US)
  Receive Date: 20250219
  Receipt Date: 20250219
  Transmission Date: 20250409
  Serious: No
  Sender: Kenvue
  Company Number: US-KENVUE-20250107877

PATIENT
  Sex: Female

DRUGS (1)
  1. WOMENS ROGAINE UNSCENTED [Suspect]
     Active Substance: MINOXIDIL
     Indication: Product used for unknown indication
     Route: 061
     Dates: start: 202412

REACTIONS (5)
  - Alopecia [Not Recovered/Not Resolved]
  - Application site dryness [Unknown]
  - Product physical issue [Unknown]
  - Poor quality product administered [Unknown]
  - Product residue present [Unknown]

NARRATIVE: CASE EVENT DATE: 20240101
